FAERS Safety Report 7867815 (Version 5)
Quarter: 2017Q3

REPORT INFORMATION
  Report Type: Report from Study
  Country: JP (occurrence: JP)
  Receive Date: 20110323
  Receipt Date: 20170921
  Transmission Date: 20171128
  Serious: Yes (Death, Life-Threatening, Hospitalization, Other)
  Sender: FDA-Public Use
  Company Number: PHHY2011JP19626

PATIENT
  Age: 62 Year
  Sex: Male
  Weight: 51 kg

DRUGS (17)
  1. RINDERON V [Concomitant]
     Active Substance: BETAMETHASONE VALERATE
     Indication: RENAL CELL CARCINOMA
     Dosage: 2 MG, UNK
     Route: 048
     Dates: start: 20101019, end: 20110201
  2. AZUNOL [Concomitant]
     Active Substance: SODIUM GUALENATE
     Indication: PROPHYLAXIS
     Dosage: 5 ML, UNK
     Route: 048
     Dates: start: 20100630, end: 20100820
  3. URSO [Concomitant]
     Active Substance: URSODIOL
     Indication: RENAL CELL CARCINOMA
     Dosage: 600 MG, UNK
     Route: 048
     Dates: start: 20100616, end: 20100820
  4. TRAMAL [Concomitant]
     Active Substance: TRAMADOL
     Indication: RENAL CELL CARCINOMA
     Dosage: 50 MG, UNK
     Route: 048
     Dates: start: 20101118, end: 20101201
  5. CLAFORAN [Concomitant]
     Active Substance: CEFOTAXIME SODIUM
     Indication: PNEUMONIA
     Dosage: 2 G, DAILY
     Route: 065
     Dates: start: 20110125, end: 20110131
  6. ZOMETA [Concomitant]
     Active Substance: ZOLEDRONIC ACID
     Indication: RENAL CELL CARCINOMA
     Dosage: UNK UKN, UNK
     Route: 041
     Dates: start: 20101116, end: 20110111
  7. TRANSAMIN [Concomitant]
     Active Substance: TRANEXAMIC ACID
     Indication: RENAL CELL CARCINOMA
     Dosage: 750 MG, UNK
     Route: 048
     Dates: start: 20100413, end: 20100820
  8. TAKEPRON [Concomitant]
     Active Substance: LANSOPRAZOLE
     Indication: PROPHYLAXIS
     Dosage: 15 MG, UNK
     Route: 048
     Dates: start: 20100907
  9. BIOFERMIN [Concomitant]
     Active Substance: BACILLUS SUBTILIS\LACTOBACILLUS ACIDOPHILUS\STREPTOCOCCUS FAECAIS
     Indication: PROPHYLAXIS
     Dosage: 3 G, UNK
     Route: 048
     Dates: start: 20101007, end: 20110201
  10. AFINITOR [Suspect]
     Active Substance: EVEROLIMUS
     Indication: RENAL CELL CARCINOMA
     Dosage: 10 MG, QD
     Route: 048
     Dates: start: 20100630, end: 20100820
  11. FERROUS SULFATE. [Concomitant]
     Active Substance: FERROUS SULFATE
     Indication: RENAL CELL CARCINOMA
     Dosage: 105 MG, UNK
     Route: 048
     Dates: start: 20100421, end: 20100820
  12. BLOOD TRANSFUSION, AUXILIARY PRODUCTS [Concomitant]
     Active Substance: HUMAN RED BLOOD CELL
     Indication: PRODUCT USED FOR UNKNOWN INDICATION
     Dosage: UNK
     Route: 065
  13. AFINITOR [Suspect]
     Active Substance: EVEROLIMUS
     Dosage: 10 MG, QD
     Route: 048
     Dates: start: 20100831, end: 20110111
  14. SUNITINIB MALATE. [Concomitant]
     Active Substance: SUNITINIB MALATE
     Indication: RENAL CELL CARCINOMA
     Dosage: 50 MG, UNK
     Route: 048
     Dates: start: 20100210, end: 20100601
  15. SUNITINIB MALATE. [Concomitant]
     Active Substance: SUNITINIB MALATE
     Dosage: 37.5 MG, UNK
     Route: 048
     Dates: end: 20100601
  16. ADONA [Concomitant]
     Active Substance: CARBAZOCHROME SODIUM SULFONATE
     Indication: RENAL CELL CARCINOMA
     Dosage: 90 MG, UNK
     Route: 048
     Dates: start: 20100413, end: 20100820
  17. HYPEN [Concomitant]
     Active Substance: ETODOLAC
     Indication: RENAL CELL CARCINOMA
     Dosage: 400 MG, UNK
     Route: 048
     Dates: start: 20100907, end: 20110201

REACTIONS (15)
  - Blood urea increased [Not Recovered/Not Resolved]
  - Pruritus [Recovered/Resolved]
  - Haemoglobin decreased [Recovered/Resolved]
  - Stomatitis [Recovered/Resolved]
  - Aspartate aminotransferase increased [Not Recovered/Not Resolved]
  - Pneumonia [Recovering/Resolving]
  - Lymphocyte count decreased [Not Recovered/Not Resolved]
  - Stomatitis [Recovered/Resolved]
  - C-reactive protein increased [Fatal]
  - Pneumonia [Fatal]
  - Blood lactate dehydrogenase increased [Not Recovered/Not Resolved]
  - Neoplasm progression [Fatal]
  - Malignant neoplasm progression [Fatal]
  - Blood lactate dehydrogenase increased [Not Recovered/Not Resolved]
  - Epistaxis [Recovered/Resolved]

NARRATIVE: CASE EVENT DATE: 20100728
